FAERS Safety Report 12870250 (Version 1)
Quarter: 2016Q4

REPORT INFORMATION
  Report Type: Report from Study
  Country: US (occurrence: US)
  Receive Date: 20161021
  Receipt Date: 20161021
  Transmission Date: 20170207
  Serious: No
  Sender: FDA-Public Use
  Company Number: US-AMGEN-USASL2016138298

PATIENT
  Age: 51 Year
  Sex: Female

DRUGS (1)
  1. ENBREL [Suspect]
     Active Substance: ETANERCEPT
     Indication: PRODUCT USED FOR UNKNOWN INDICATION
     Dosage: 50 MG, QWK
     Route: 065

REACTIONS (8)
  - Cough [Unknown]
  - Poor quality sleep [Unknown]
  - Irritability [Unknown]
  - Oral herpes [Unknown]
  - Injection site erythema [Recovering/Resolving]
  - Agitation [Unknown]
  - Dry throat [Unknown]
  - Injection site pruritus [Recovering/Resolving]
